FAERS Safety Report 9633252 (Version 1)
Quarter: 2013Q4

REPORT INFORMATION
  Report Type: Spontaneous
  Country: US (occurrence: None)
  Receive Date: 20131018
  Receipt Date: 20131018
  Transmission Date: 20140711
  Serious: Yes (Other)
  Sender: FDA-Public Use
  Company Number: None

PATIENT
  Age: 56 Year
  Sex: Female

DRUGS (1)
  1. ULORIC [Suspect]
     Indication: GOUT
     Dosage: 2 PILLS
     Dates: start: 20110401, end: 20110609

REACTIONS (13)
  - Tremor [None]
  - Hyperhidrosis [None]
  - Nausea [None]
  - Disorientation [None]
  - Neck pain [None]
  - Dizziness [None]
  - Vision blurred [None]
  - Nervousness [None]
  - Dry mouth [None]
  - Pain in extremity [None]
  - Hypoaesthesia [None]
  - Therapy cessation [None]
  - Cerebrovascular accident [None]
